FAERS Safety Report 24658228 (Version 2)
Quarter: 2024Q4

REPORT INFORMATION
  Report Type: Report from Study
  Country: RO (occurrence: RO)
  Receive Date: 20241125
  Receipt Date: 20241129
  Transmission Date: 20250115
  Serious: Yes (Other)
  Sender: SANOFI AVENTIS
  Company Number: RO-EMA-DD-20241014-7482663-104552

PATIENT
  Age: 64 Year
  Sex: Female

DRUGS (6)
  1. DOCETAXEL [Suspect]
     Active Substance: DOCETAXEL
     Indication: Hormone receptor negative HER2 positive breast cancer
     Dosage: 75 MG/M2
  2. DOCETAXEL [Suspect]
     Active Substance: DOCETAXEL
     Indication: Invasive ductal breast carcinoma
     Dosage: 100 MG/M2, QCY INTRAVENOUS INFUSION
     Route: 041
  3. PERTUZUMAB [Suspect]
     Active Substance: PERTUZUMAB
     Indication: Hormone receptor negative HER2 positive breast cancer
     Dosage: 840 MG
  4. PERTUZUMAB [Suspect]
     Active Substance: PERTUZUMAB
     Indication: Invasive ductal breast carcinoma
     Dosage: 420 MG, QCY
     Route: 041
  5. TRASTUZUMAB [Suspect]
     Active Substance: TRASTUZUMAB
     Indication: Hormone receptor negative HER2 positive breast cancer
     Dosage: 8 MG/KG
     Route: 042
  6. TRASTUZUMAB [Suspect]
     Active Substance: TRASTUZUMAB
     Indication: Invasive ductal breast carcinoma
     Dosage: 6 MG/KG, QCY
     Route: 041

REACTIONS (1)
  - Cardiotoxicity [Unknown]
